FAERS Safety Report 6370092-1 (Version None)
Quarter: 2009Q3

REPORT INFORMATION
  Report Type: 
  Country: None (occurrence: None)
  Receive Date: 20090923
  Receipt Date: 20070425
  Transmission Date: 20100115
  Serious: Yes (Hospitalization, Disabling)
  Sender: FDA-Public Use
  Company Number: US-ASTRAZENECA-2006UW22305

PATIENT
  Age: 441 Month
  Sex: Female
  Weight: 59 kg

DRUGS (25)
  1. SEROQUEL [Suspect]
     Indication: DEPRESSION
     Route: 048
     Dates: start: 19990101
  2. SEROQUEL [Suspect]
     Dosage: 50-100 MG
     Route: 048
     Dates: start: 20031125
  3. ABILIFY [Concomitant]
  4. NAVANE [Concomitant]
  5. RISPERDAL [Concomitant]
  6. DEPAKOTE [Concomitant]
     Dosage: 200 MG-500 MG
     Route: 048
  7. GEODON [Concomitant]
     Route: 048
  8. GEODON [Concomitant]
     Route: 065
  9. HALDOL [Concomitant]
     Dosage: 5 MG-100 MG
     Route: 030
  10. EFFEXOR [Concomitant]
     Route: 048
  11. LORAZEPAM [Concomitant]
     Dosage: 1-21 MG
     Route: 048
  12. LORAZEPAM [Concomitant]
     Route: 065
  13. LORTAB [Concomitant]
     Route: 048
  14. ACCUPRIL [Concomitant]
     Route: 065
  15. ACTOS [Concomitant]
     Route: 048
  16. AVANDIA [Concomitant]
     Dosage: 2-4 MG
     Route: 065
  17. TEGRETOL [Concomitant]
     Dosage: 200 MG-300 MG
     Route: 048
  18. CYCLOBENZAPRINE [Concomitant]
     Route: 048
  19. DILANTIN [Concomitant]
     Route: 065
  20. GLUCOPHAGE [Concomitant]
     Route: 048
  21. PREDNISONE TAB [Concomitant]
     Route: 065
  22. STARLIX [Concomitant]
     Route: 048
  23. VISTARIL [Concomitant]
     Route: 065
  24. ZYPREXA [Concomitant]
     Route: 065
  25. ZYPREXA [Concomitant]
     Route: 065

REACTIONS (2)
  - DIABETES MELLITUS [None]
  - DIABETIC COMA [None]
